FAERS Safety Report 6129655-0 (Version None)
Quarter: 2009Q1

REPORT INFORMATION
  Report Type: 
  Country: None (occurrence: None)
  Receive Date: 20090320
  Receipt Date: 20081110
  Transmission Date: 20090719
  Serious: Yes (Other)
  Sender: FDA-Public Use
  Company Number: 2009EU000998

PATIENT
  Age: 49 Year
  Sex: Male

DRUGS (5)
  1. TACROLIMUS [Suspect]
  2. AMOXIICILLINA (AMOXICILLIN TRIHYDRATE) [Concomitant]
  3. METHYLPREDNISOLONE (METHYLPREDNISOLONE SODIUM SUCCINATE) [Concomitant]
  4. GANCICLOVIR (GANCICLOVIR SODIUM) [Concomitant]
  5. METRONIDAZOLE (METRONIDAZOLE SODIUM) [Concomitant]

REACTIONS (9)
  - CULTURE POSITIVE [None]
  - FUNGAL INFECTION [None]
  - HAEMOLYSIS [None]
  - HEPATIC NECROSIS [None]
  - HYPOTENSION [None]
  - METABOLIC ACIDOSIS [None]
  - RENAL FAILURE ACUTE [None]
  - RESPIRATORY DISTRESS [None]
  - THROMBOTIC MICROANGIOPATHY [None]
